FAERS Safety Report 8456641-8 (Version None)
Quarter: 2012Q2

REPORT INFORMATION
  Report Type: 
  Country: None (occurrence: None)
  Receive Date: 20120621
  Receipt Date: 20120618
  Transmission Date: 20120825
  Serious: Yes (Hospitalization)
  Sender: FDA-Public Use
  Company Number: IT-SANOFI-AVENTIS-2012SA037446

PATIENT
  Age: 71 Year
  Sex: Male

DRUGS (9)
  1. ENALAPRIL MALEATE [Concomitant]
  2. LANTUS [Suspect]
     Indication: TYPE 1 DIABETES MELLITUS
     Route: 058
     Dates: start: 20100101, end: 20120522
  3. ASPIRIN [Concomitant]
  4. LANTUS [Suspect]
     Dosage: DOSE MODIFIED
     Route: 065
  5. HUMULIN R [Suspect]
     Indication: TYPE 1 DIABETES MELLITUS
     Route: 058
     Dates: start: 20100101, end: 20120522
  6. HUMAN PROTAPHANE [Suspect]
     Dosage: DOSE MODIFIED
     Route: 065
  7. HUMULIN R [Suspect]
     Dosage: DOSE MODIFIED
     Route: 065
  8. TIMOLOL MALEATE [Concomitant]
     Indication: DIABETIC GLAUCOMA
  9. HUMAN PROTAPHANE [Suspect]
     Indication: TYPE 1 DIABETES MELLITUS
     Route: 058
     Dates: start: 20100101, end: 20120522

REACTIONS (5)
  - CRANIOCEREBRAL INJURY [None]
  - SOPOR [None]
  - FALL [None]
  - HYPOGLYCAEMIA [None]
  - MALAISE [None]
